FAERS Safety Report 5644934-9 (Version None)
Quarter: 2008Q1

REPORT INFORMATION
  Report Type: 
  Country: None (occurrence: None)
  Receive Date: 20080229
  Receipt Date: 20071029
  Transmission Date: 20080703
  Serious: No
  Sender: FDA-Public Use
  Company Number: A0691305A

PATIENT
  Age: 57 Year
  Sex: Male

DRUGS (1)
  1. VALTREX [Suspect]
     Indication: GENITAL HERPES
     Route: 048

REACTIONS (2)
  - ADVERSE DRUG REACTION [None]
  - HYPOAESTHESIA [None]
